FAERS Safety Report 9777635 (Version 2)
Quarter: 2014Q1

REPORT INFORMATION
  Report Type: Spontaneous
  Country: IT (occurrence: IT)
  Receive Date: 20131223
  Receipt Date: 20140124
  Transmission Date: 20141002
  Serious: Yes (Hospitalization, Other)
  Sender: FDA-Public Use
  Company Number: IT-TEVA-450952ISR

PATIENT
  Age: 59 Year
  Sex: Female

DRUGS (2)
  1. CITALOPRAM [Suspect]
     Dosage: TOOK AN UNKNOWN NUMBER OF TABLETS
     Route: 048
     Dates: start: 20131024, end: 20131024
  2. MIRTAZAPINE [Suspect]
     Dosage: TOOK AN UNKNOWN NUMBER OF TABLETS
     Route: 048
     Dates: start: 20131024, end: 20131024

REACTIONS (3)
  - Coma [Recovered/Resolved]
  - Drug abuse [Unknown]
  - Suicide attempt [Unknown]
